FAERS Safety Report 16098473 (Version 1)
Quarter: 2019Q1

REPORT INFORMATION
  Report Type: Spontaneous
  Country: US (occurrence: US)
  Receive Date: 20190321
  Receipt Date: 20190321
  Transmission Date: 20190418
  Serious: No
  Sender: FDA-Public Use
  Company Number: US-CELGENEUS-USA-20190305436

PATIENT
  Age: 4 Decade
  Sex: Male

DRUGS (2)
  1. APREMILAST [Suspect]
     Active Substance: APREMILAST
     Indication: PSORIASIS
     Dosage: TITRATION PACK, 3-4 MONTHS
     Route: 048
  2. APREMILAST [Suspect]
     Active Substance: APREMILAST
     Route: 048

REACTIONS (1)
  - Headache [Recovered/Resolved]
